FAERS Safety Report 9934587 (Version 1)
Quarter: 2014Q1

REPORT INFORMATION
  Report Type: Spontaneous
  Country: ES (occurrence: ES)
  Receive Date: 20140228
  Receipt Date: 20140228
  Transmission Date: 20141002
  Serious: Yes (Hospitalization)
  Sender: FDA-Public Use
  Company Number: ES-BRISTOL-MYERS SQUIBB COMPANY-20342713

PATIENT
  Age: 38 Year
  Sex: Male

DRUGS (4)
  1. ARIPIPRAZOLE [Suspect]
     Indication: PSYCHOTIC DISORDER
     Dosage: 15 MG DAILY.
  2. ARIPIPRAZOLE [Suspect]
     Indication: SCHIZOAFFECTIVE DISORDER BIPOLAR TYPE
     Dosage: 15 MG DAILY.
  3. QUETIAPINE [Concomitant]
     Route: 065
  4. OXCARBAZEPINE [Concomitant]
     Route: 065

REACTIONS (3)
  - Catatonia [Unknown]
  - Psychotic disorder [Unknown]
  - Off label use [Unknown]
